FAERS Safety Report 12837494 (Version 1)
Quarter: 2016Q4

REPORT INFORMATION
  Report Type: Report from Study
  Country: US (occurrence: US)
  Receive Date: 20161012
  Receipt Date: 20161012
  Transmission Date: 20170207
  Serious: Yes (Other)
  Sender: FDA-Public Use
  Company Number: US-AMGEN-USASL2016138553

PATIENT
  Age: 58 Year
  Sex: Female

DRUGS (1)
  1. ENBREL [Suspect]
     Active Substance: ETANERCEPT
     Indication: RHEUMATOID ARTHRITIS
     Dosage: UNK
     Route: 065

REACTIONS (6)
  - Bone disorder [Unknown]
  - Arthralgia [Not Recovered/Not Resolved]
  - Meniscus injury [Unknown]
  - Musculoskeletal pain [Not Recovered/Not Resolved]
  - Breast conserving surgery [Unknown]
  - Pain in extremity [Not Recovered/Not Resolved]
